FAERS Safety Report 25302051 (Version 1)
Quarter: 2025Q2

REPORT INFORMATION
  Report Type: Spontaneous
  Country: BR (occurrence: BR)
  Receive Date: 20250512
  Receipt Date: 20250512
  Transmission Date: 20250717
  Serious: Yes (Life-Threatening, Hospitalization, Other)
  Sender: BIOVITRUM
  Company Number: BR-AstraZeneca-CH-00865936A

PATIENT
  Age: 5 Month
  Sex: Male
  Weight: 8 kg

DRUGS (1)
  1. SYNAGIS [Suspect]
     Active Substance: PALIVIZUMAB
     Indication: Respiratory syncytial virus immunisation
     Route: 030
     Dates: end: 20250427

REACTIONS (5)
  - Cardiac arrest [Unknown]
  - Atrial septal defect [Recovering/Resolving]
  - Ventricular septal defect [Recovering/Resolving]
  - Pulmonary valve stenosis [Recovering/Resolving]
  - Oedema due to cardiac disease [Unknown]

NARRATIVE: CASE EVENT DATE: 20250101
